FAERS Safety Report 5522662-8 (Version None)
Quarter: 2007Q4

REPORT INFORMATION
  Report Type: 
  Country: None (occurrence: None)
  Receive Date: 20071120
  Receipt Date: 20071112
  Transmission Date: 20080405
  Serious: Yes (Other)
  Sender: FDA-Public Use
  Company Number: US-PFIZER INC-2007096141

PATIENT
  Sex: Female
  Weight: 62.7 kg

DRUGS (9)
  1. DETROL LA [Suspect]
     Indication: BLADDER PROLAPSE
     Route: 048
  2. METFORMIN HYDROCHLORIDE [Concomitant]
  3. GLIPIZIDE [Concomitant]
  4. LISINOPRIL [Concomitant]
  5. CATAPRES [Concomitant]
  6. ALLOPURINOL [Concomitant]
  7. HYDROCHLOROTHIAZIDE [Concomitant]
  8. ACETYLSALICYLIC ACID SRT [Concomitant]
  9. MULTI-VITAMINS [Concomitant]

REACTIONS (1)
  - BLOOD GLUCOSE INCREASED [None]
